FAERS Safety Report 11234558 (Version 1)
Quarter: 2015Q3

REPORT INFORMATION
  Report Type: Spontaneous
  Country: KR (occurrence: KR)
  Receive Date: 20150702
  Receipt Date: 20150702
  Transmission Date: 20151125
  Serious: Yes (Hospitalization)
  Sender: FDA-Public Use
  Company Number: KR-ASTRAZENECA-2015SE63482

PATIENT
  Age: 49 Year
  Sex: Male

DRUGS (7)
  1. RANITIDINE [Concomitant]
     Active Substance: RANITIDINE\RANITIDINE HYDROCHLORIDE
  2. HEPARIN [Concomitant]
     Active Substance: HEPARIN SODIUM
     Route: 042
  3. DOPAMIN [Concomitant]
     Active Substance: DOPAMINE HYDROCHLORIDE
     Route: 042
  4. ROSUVASTATIN [Concomitant]
     Active Substance: ROSUVASTATIN
  5. BRILINTA [Suspect]
     Active Substance: TICAGRELOR
     Indication: ACUTE MYOCARDIAL INFARCTION
     Route: 048
  6. ASPIRIN. [Concomitant]
     Active Substance: ASPIRIN
  7. MEDICATION A [Concomitant]

REACTIONS (2)
  - Haemorrhage [Recovered/Resolved]
  - Myocardial ischaemia [Recovered/Resolved]

NARRATIVE: CASE EVENT DATE: 2015
